FAERS Safety Report 14213450 (Version 2)
Quarter: 2018Q1

REPORT INFORMATION
  Report Type: Report from Study
  Country: JP (occurrence: JP)
  Receive Date: 20171122
  Receipt Date: 20180226
  Transmission Date: 20180508
  Serious: Yes (Life-Threatening, Hospitalization)
  Sender: FDA-Public Use
  Company Number: JP-AMGEN-JPNNI2017175199

PATIENT
  Age: 65 Year
  Sex: Male

DRUGS (12)
  1. CARFILZOMIB [Suspect]
     Active Substance: CARFILZOMIB
     Dosage: 56 MG/M2, UNK
     Route: 041
     Dates: start: 20170704, end: 20170705
  2. DENOSINE [Suspect]
     Active Substance: GANCICLOVIR
     Dosage: 80 MG, UNK
     Route: 065
     Dates: start: 20170803, end: 20170803
  3. DEXAMETHASONE. [Concomitant]
     Active Substance: DEXAMETHASONE
     Dosage: UNK
     Dates: start: 20170718, end: 20170719
  4. DENOSINE [Suspect]
     Active Substance: GANCICLOVIR
     Dosage: 80 MG, UNK
     Route: 065
     Dates: start: 20170805, end: 20170805
  5. DEXAMETHASONE. [Concomitant]
     Active Substance: DEXAMETHASONE
     Dosage: UNK
     Dates: start: 20170727, end: 20170727
  6. CARFILZOMIB [Suspect]
     Active Substance: CARFILZOMIB
     Indication: PLASMA CELL MYELOMA
     Dosage: 20 MG/M2, UNK
     Route: 041
     Dates: start: 20170627, end: 20170628
  7. DEXAMETHASONE. [Concomitant]
     Active Substance: DEXAMETHASONE
     Dosage: UNK
     Dates: start: 20170711, end: 20170712
  8. DEXAMETHASONE. [Concomitant]
     Active Substance: DEXAMETHASONE
     Dosage: UNK
     Dates: start: 20170627, end: 20170628
  9. CARFILZOMIB [Suspect]
     Active Substance: CARFILZOMIB
     Dosage: 56 MG/M2, UNK
     Route: 041
     Dates: start: 20170711, end: 20170712
  10. CARFILZOMIB [Suspect]
     Active Substance: CARFILZOMIB
     Dosage: 56 MG/M2, UNK
     Route: 041
     Dates: start: 20170727, end: 20170727
  11. DENOSINE [Suspect]
     Active Substance: GANCICLOVIR
     Indication: CYTOMEGALOVIRUS INFECTION
     Dosage: 200 MG, UNK
     Route: 065
     Dates: start: 20170730, end: 20170730
  12. DEXAMETHASONE. [Concomitant]
     Active Substance: DEXAMETHASONE
     Dosage: UNK
     Dates: start: 20170704, end: 20170705

REACTIONS (2)
  - Cytomegalovirus infection [Recovered/Resolved with Sequelae]
  - Renal disorder [Recovered/Resolved]

NARRATIVE: CASE EVENT DATE: 20170728
